FAERS Safety Report 6746761-8 (Version None)
Quarter: 2010Q2

REPORT INFORMATION
  Report Type: 
  Country: None (occurrence: None)
  Receive Date: 20100528
  Receipt Date: 20090821
  Transmission Date: 20101027
  Serious: No
  Sender: FDA-Public Use
  Company Number: A0803533A

PATIENT
  Age: 69 Year
  Sex: Female

DRUGS (8)
  1. VENTOLIN [Suspect]
     Indication: ASTHMA
     Dosage: 4PUFF THREE TIMES PER WEEK
     Route: 055
     Dates: start: 20090701
  2. OXYGEN [Concomitant]
  3. ADVAIR DISKUS 100/50 [Concomitant]
  4. SPIRIVA [Concomitant]
  5. METHOCARBAMOL [Concomitant]
  6. FEXOFENADINE [Concomitant]
  7. DARVON [Concomitant]
  8. CLONAZEPAM [Concomitant]

REACTIONS (1)
  - DYSPNOEA [None]
